FAERS Safety Report 7804882-2 (Version None)
Quarter: 2011Q4

REPORT INFORMATION
  Report Type: 
  Country: None (occurrence: None)
  Receive Date: 20111010
  Receipt Date: 20110928
  Transmission Date: 20120403
  Serious: Yes (Other)
  Sender: FDA-Public Use
  Company Number: JP-MERCK-1108USA03019

PATIENT
  Age: 58 Year
  Sex: Male

DRUGS (3)
  1. PEPCID [Suspect]
     Route: 051
     Dates: start: 20110818
  2. PEPCID [Suspect]
     Route: 051
     Dates: start: 20110814, end: 20110814
  3. OMEPRAZOLE [Suspect]
     Route: 065
     Dates: start: 20110815

REACTIONS (2)
  - RHABDOMYOLYSIS [None]
  - BLOOD CREATINE PHOSPHOKINASE INCREASED [None]
